FAERS Safety Report 4976275-7 (Version None)
Quarter: 2006Q2

REPORT INFORMATION
  Report Type: 
  Country: None (occurrence: None)
  Receive Date: 20060412
  Receipt Date: 20060331
  Transmission Date: 20061013
  Serious: Yes (Other)
  Sender: FDA-Public Use
  Company Number: 2006044311

PATIENT
  Sex: Female

DRUGS (2)
  1. NICORETTE [Suspect]
     Dosage: TRANSDERMAL
     Route: 062
  2. EPINEPHRINE [Concomitant]

REACTIONS (1)
  - ANAPHYLACTIC SHOCK [None]
